FAERS Safety Report 8323080 (Version 2)
Quarter: 2013Q1

REPORT INFORMATION
  Report Type: Spontaneous
  Country: US (occurrence: US)
  Receive Date: 20120105
  Receipt Date: 20130321
  Transmission Date: 20140127
  Serious: Yes (Hospitalization)
  Sender: FDA-Public Use
  Company Number: US-GLAXOSMITHKLINE-A0849018A

PATIENT
  Age: 53 Year
  Sex: Male
  Weight: 79.6 kg

DRUGS (7)
  1. AVANDIA [Suspect]
     Indication: DIABETES MELLITUS
     Dosage: 8MG PER DAY
     Route: 048
     Dates: start: 20020715, end: 2007
  2. NORVASC [Concomitant]
  3. GLUCOTROL [Concomitant]
  4. AMARYL [Concomitant]
  5. NADOLOL [Concomitant]
  6. NORVASC [Concomitant]
  7. CORGARD [Concomitant]

REACTIONS (4)
  - Acute myocardial infarction [Unknown]
  - Ventricular fibrillation [Unknown]
  - Cardiac arrest [Unknown]
  - Atrioventricular block [Unknown]
